FAERS Safety Report 9375899 (Version 2)
Quarter: 2013Q4

REPORT INFORMATION
  Report Type: Spontaneous
  Country: US (occurrence: US)
  Receive Date: 20130628
  Receipt Date: 20131216
  Transmission Date: 20140711
  Serious: Yes (Hospitalization)
  Sender: FDA-Public Use
  Company Number: US-B.I. PHARMACEUTICALS,INC./RIDGEFIELD-2013-BI-18572BP

PATIENT
  Age: 88 Year
  Sex: Male
  Weight: 81.65 kg

DRUGS (6)
  1. PRADAXA [Suspect]
     Indication: ANTICOAGULANT THERAPY
     Dates: start: 20110710, end: 20110805
  2. BUMETANIDE [Concomitant]
  3. LOVASTATIN [Concomitant]
  4. VITAMIN D [Concomitant]
  5. LOSARTAN [Concomitant]
  6. GLIPIZIDE [Concomitant]

REACTIONS (2)
  - Gastrointestinal haemorrhage [Unknown]
  - Haemorrhagic anaemia [Unknown]
